FAERS Safety Report 9477880 (Version 2)
Quarter: 2013Q3

REPORT INFORMATION
  Report Type: Report from Study
  Country: US (occurrence: US)
  Receive Date: 20130827
  Receipt Date: 20130827
  Transmission Date: 20140515
  Serious: Yes (Hospitalization, Other)
  Sender: FDA-Public Use
  Company Number: US-ABBOTT-13P-163-1116091-00

PATIENT
  Age: 30 Year
  Sex: Female
  Weight: 125.3 kg

DRUGS (3)
  1. HUMIRA [Suspect]
     Indication: CROHN^S DISEASE
     Dates: start: 201111, end: 201208
  2. HUMIRA [Suspect]
     Dates: start: 201303
  3. HUMIRA [Suspect]
     Dates: start: 20130507

REACTIONS (3)
  - Enterocutaneous fistula [Recovered/Resolved]
  - Intestinal fistula infection [Recovered/Resolved]
  - Injection site pain [Recovering/Resolving]
